FAERS Safety Report 6134081-4 (Version None)
Quarter: 2009Q1

REPORT INFORMATION
  Report Type: 
  Country: None (occurrence: None)
  Receive Date: 20090326
  Receipt Date: 20090318
  Transmission Date: 20090719
  Serious: Yes (Hospitalization)
  Sender: FDA-Public Use
  Company Number: PHHY2009IN10370

PATIENT
  Age: 17 Year
  Sex: Female

DRUGS (1)
  1. CLOZAPINE [Suspect]
     Dosage: 3.9 G, ONCE/SINGLE

REACTIONS (16)
  - AREFLEXIA [None]
  - BIOPSY MUSCLE [None]
  - BLOOD CREATININE INCREASED [None]
  - CREPITATIONS [None]
  - FACIAL PALSY [None]
  - GASTRIC LAVAGE [None]
  - HYPOTENSION [None]
  - LOSS OF CONSCIOUSNESS [None]
  - MUSCULAR WEAKNESS [None]
  - MYALGIA [None]
  - MYDRIASIS [None]
  - MYOPATHY [None]
  - MYOSITIS [None]
  - OVERDOSE [None]
  - SINUS TACHYCARDIA [None]
  - SUICIDE ATTEMPT [None]
